FAERS Safety Report 20568817 (Version 1)
Quarter: 2022Q1

REPORT INFORMATION
  Report Type: Spontaneous
  Country: US (occurrence: US)
  Receive Date: 20220308
  Receipt Date: 20220308
  Transmission Date: 20220423
  Serious: Yes (Other)
  Sender: FDA-Public Use
  Company Number: US-Adamas_Pharmaceuticals-USA-POI1235202200018

PATIENT
  Age: 74 Year
  Sex: Female

DRUGS (7)
  1. OSMOLEX ER [Suspect]
     Active Substance: AMANTADINE
     Indication: Parkinson^s disease
     Dates: start: 20200317, end: 20200330
  2. OSMOLEX ER [Suspect]
     Active Substance: AMANTADINE
     Dates: start: 20200331, end: 202004
  3. OSMOLEX ER [Suspect]
     Active Substance: AMANTADINE
     Dates: start: 202004
  4. ACETAMINOPHEN\HYDROCODONE [Suspect]
     Active Substance: ACETAMINOPHEN\HYDROCODONE
     Indication: Product used for unknown indication
     Dosage: 1 TO 2 TABLETS Q6H, PRN
     Dates: start: 20220221, end: 20220227
  5. ACETAMINOPHEN\HYDROCODONE [Suspect]
     Active Substance: ACETAMINOPHEN\HYDROCODONE
     Dosage: 1 TABLET Q12H, PRN
     Dates: start: 20220228
  6. TIZANIDINE [Concomitant]
     Active Substance: TIZANIDINE
     Indication: Product used for unknown indication
     Dates: start: 20220224, end: 20220224
  7. TIZANIDINE [Concomitant]
     Active Substance: TIZANIDINE
     Dates: start: 20220225, end: 20220225

REACTIONS (3)
  - Spinal compression fracture [Recovering/Resolving]
  - Drug interaction [Recovering/Resolving]
  - Hallucination, visual [Recovering/Resolving]

NARRATIVE: CASE EVENT DATE: 20220220
